FAERS Safety Report 12814165 (Version 4)
Quarter: 2017Q2

REPORT INFORMATION
  Report Type: Spontaneous
  Country: JP (occurrence: JP)
  Receive Date: 20161006
  Receipt Date: 20170601
  Transmission Date: 20170830
  Serious: Yes (Death, Hospitalization)
  Sender: FDA-Public Use
  Company Number: JP-ROCHE-1838912

PATIENT
  Age: 89 Year
  Sex: Female
  Weight: 36 kg

DRUGS (6)
  1. ALBUMINAR [Concomitant]
     Active Substance: ALBUMIN HUMAN
     Dosage: 25 G/100 ML/DAY
     Route: 042
     Dates: start: 20160830, end: 20160906
  2. DENOSINE (JAPAN) [Suspect]
     Active Substance: GANCICLOVIR
     Indication: CYTOMEGALOVIRUS ENTEROCOLITIS
     Route: 041
     Dates: start: 20160830, end: 20160912
  3. HEPARIN SODIUM. [Concomitant]
     Active Substance: HEPARIN SODIUM
     Dosage: 12 KU
     Route: 051
     Dates: start: 20160829, end: 20160830
  4. FOSCARNET SODIUM. [Concomitant]
     Active Substance: FOSCARNET SODIUM
     Route: 065
     Dates: start: 20160912
  5. TAKEPRON [Concomitant]
     Active Substance: LANSOPRAZOLE
     Route: 051
     Dates: start: 20160831, end: 20160914
  6. FUROSEMIDE. [Concomitant]
     Active Substance: FUROSEMIDE
     Route: 051
     Dates: start: 20160905, end: 20160909

REACTIONS (2)
  - Cytomegalovirus enterocolitis [Fatal]
  - Platelet count decreased [Fatal]

NARRATIVE: CASE EVENT DATE: 20160912
